FAERS Safety Report 25072031 (Version 1)
Quarter: 2025Q1

REPORT INFORMATION
  Report Type: Spontaneous
  Country: US (occurrence: US)
  Receive Date: 20250313
  Receipt Date: 20250313
  Transmission Date: 20250409
  Serious: No
  Sender: TEVA
  Company Number: US-TEVA-VS-3305229

PATIENT

DRUGS (1)
  1. ARMODAFINIL [Suspect]
     Active Substance: ARMODAFINIL
     Indication: Product used for unknown indication
     Route: 048

REACTIONS (4)
  - Rash pruritic [Unknown]
  - Drug ineffective [Unknown]
  - Poor quality sleep [Unknown]
  - Swelling [Unknown]
